FAERS Safety Report 20813704 (Version 2)
Quarter: 2022Q2

REPORT INFORMATION
  Report Type: Spontaneous
  Country: US (occurrence: US)
  Receive Date: 20220511
  Receipt Date: 20220530
  Transmission Date: 20220720
  Serious: No
  Sender: FDA-Public Use
  Company Number: US-CELGENE-USA-20220301955

PATIENT
  Sex: Female

DRUGS (1)
  1. REVLIMID [Suspect]
     Active Substance: LENALIDOMIDE
     Indication: Plasma cell myeloma
     Dosage: 10 MILLIGRAM, DAILY 21 DAYS
     Route: 048
     Dates: start: 20220213

REACTIONS (2)
  - Rash pruritic [Unknown]
  - Swelling [Unknown]

NARRATIVE: CASE EVENT DATE: 20220101
